FAERS Safety Report 17551653 (Version 1)
Quarter: 2020Q1

REPORT INFORMATION
  Report Type: Spontaneous
  Country: JP (occurrence: JP)
  Receive Date: 20200317
  Receipt Date: 20200317
  Transmission Date: 20200409
  Serious: Yes (Hospitalization)
  Sender: FDA-Public Use
  Company Number: JP-AMGEN-JPNSP2020042970

PATIENT
  Age: 51 Year
  Sex: Male

DRUGS (6)
  1. LOTRIGA [Concomitant]
     Active Substance: OMEGA-3-ACID ETHYL ESTERS
     Dosage: 2 GRAM, QD
  2. REPATHA [Suspect]
     Active Substance: EVOLOCUMAB
     Indication: HYPERCHOLESTEROLAEMIA
     Dosage: 420 MILLIGRAM, QMO
     Route: 058
     Dates: start: 20190625
  3. ATOZET COMBINATION HD [Concomitant]
  4. AZELNIDIPINE [Concomitant]
     Active Substance: AZELNIDIPINE
  5. AZILVA [Concomitant]
     Active Substance: AZILSARTAN KAMEDOXOMIL
  6. EFIENT [Concomitant]
     Active Substance: PRASUGREL HYDROCHLORIDE

REACTIONS (1)
  - Dyspnoea [Unknown]
